FAERS Safety Report 10018015 (Version 1)
Quarter: 2014Q1

REPORT INFORMATION
  Report Type: Spontaneous
  Country: FR (occurrence: FR)
  Receive Date: 20140318
  Receipt Date: 20140318
  Transmission Date: 20141002
  Serious: Yes (Other)
  Sender: FDA-Public Use
  Company Number: FR-NOVOPROD-402761

PATIENT
  Age: 40 Year
  Sex: Male

DRUGS (13)
  1. VICTOZA [Suspect]
     Indication: TYPE 2 DIABETES MELLITUS
     Dosage: 1 DF, QD
     Route: 058
     Dates: start: 201201, end: 20131211
  2. LEVEMIR [Suspect]
     Indication: TYPE 2 DIABETES MELLITUS
     Dosage: UNK
     Route: 065
     Dates: start: 201201
  3. DIAMICRON [Suspect]
     Indication: TYPE 2 DIABETES MELLITUS
     Dosage: 1 DF, QD
     Route: 048
     Dates: start: 201201, end: 201311
  4. PREVISCAN /00261401/ [Suspect]
     Indication: PULMONARY EMBOLISM
     Route: 048
     Dates: start: 201201
  5. COVERSYL /00790702/ [Suspect]
     Indication: ACUTE CORONARY SYNDROME
     Dosage: 5 MG, QD
     Route: 048
     Dates: start: 20131104
  6. COVERSYL /00790702/ [Suspect]
     Dosage: 4 MG, QD (DOSE DECREASED)
     Route: 048
     Dates: start: 20140131
  7. INEXIUM                            /01479302/ [Concomitant]
     Dosage: 20 MG, QD
     Route: 048
  8. PLAVIX [Concomitant]
     Dosage: UNK
     Route: 048
     Dates: start: 20131104
  9. KARDEGIC [Concomitant]
     Dosage: 160 MG, QD
     Dates: start: 20131104
  10. TAHOR [Concomitant]
     Dosage: 40 MG, QD
     Route: 048
  11. TEMERIT [Concomitant]
     Dosage: 10 MG, QD
     Route: 048
     Dates: start: 20131104
  12. AMLODIPINE [Concomitant]
     Indication: HYPERTENSION
     Dosage: 10 MG, QD
     Route: 048
  13. LASILIX                            /00032601/ [Concomitant]
     Dosage: 40 MG, QD
     Dates: start: 201310, end: 201401

REACTIONS (1)
  - Renal failure [Not Recovered/Not Resolved]
